FAERS Safety Report 5775478-1 (Version None)
Quarter: 2008Q2

REPORT INFORMATION
  Report Type: 
  Country: None (occurrence: None)
  Receive Date: 20080612
  Receipt Date: 20080526
  Transmission Date: 20081010
  Serious: Yes (Hospitalization)
  Sender: FDA-Public Use
  Company Number: 2008AP000349

PATIENT
  Age: 33 Year
  Sex: Female

DRUGS (15)
  1. PAROXETINE HCL [Suspect]
     Indication: DEPRESSION
     Dosage: 20 MG; PO; QD; 20 MG; PO; QD; 20 MG; PO; QD; 5 MG; PO; QD; 0.25 TAB; PO; QOD; 5 MG; PO; QD; ORAL_SOL
     Route: 048
     Dates: start: 19981112
  2. PAROXETINE HCL [Suspect]
     Indication: DEPRESSION
     Dosage: 20 MG; PO; QD; 20 MG; PO; QD; 20 MG; PO; QD; 5 MG; PO; QD; 0.25 TAB; PO; QOD; 5 MG; PO; QD; ORAL_SOL
     Route: 048
     Dates: start: 20000121
  3. PAROXETINE HCL [Suspect]
     Indication: DEPRESSION
     Dosage: 20 MG; PO; QD; 20 MG; PO; QD; 20 MG; PO; QD; 5 MG; PO; QD; 0.25 TAB; PO; QOD; 5 MG; PO; QD; ORAL_SOL
     Route: 048
     Dates: start: 20020708
  4. PAROXETINE HCL [Suspect]
     Indication: DEPRESSION
     Dosage: 20 MG; PO; QD; 20 MG; PO; QD; 20 MG; PO; QD; 5 MG; PO; QD; 0.25 TAB; PO; QOD; 5 MG; PO; QD; ORAL_SOL
     Route: 048
     Dates: start: 20030214
  5. PAROXETINE HCL [Suspect]
     Indication: DEPRESSION
     Dosage: 20 MG; PO; QD; 20 MG; PO; QD; 20 MG; PO; QD; 5 MG; PO; QD; 0.25 TAB; PO; QOD; 5 MG; PO; QD; ORAL_SOL
     Route: 048
     Dates: start: 20030616
  6. PAROXETINE HCL [Suspect]
     Indication: DEPRESSION
     Dosage: 20 MG; PO; QD; 20 MG; PO; QD; 20 MG; PO; QD; 5 MG; PO; QD; 0.25 TAB; PO; QOD; 5 MG; PO; QD; ORAL_SOL
     Route: 048
     Dates: start: 20030922
  7. PAROXETINE HCL [Suspect]
     Indication: DEPRESSION
     Dosage: 20 MG; PO; QD; 20 MG; PO; QD; 20 MG; PO; QD; 5 MG; PO; QD; 0.25 TAB; PO; QOD; 5 MG; PO; QD; ORAL_SOL
     Route: 048
     Dates: start: 20040202
  8. ALCOHOL (ETHANOL) [Concomitant]
  9. CITALOPRAM HYDROBROMIDE [Concomitant]
  10. FLUOXETINE HCL [Concomitant]
  11. LOFEPRAMINE (LOFEPRAMINE) [Concomitant]
  12. NICOTINE [Concomitant]
  13. TRIFLUOPERAZINE HYDROCHLORIDE (TRIFLUOPERAZINE HYDROCHLORIDE) [Concomitant]
  14. BUPROPION HYDROCHLORIDE [Concomitant]
  15. MINOCYCLINE HCL [Concomitant]

REACTIONS (36)
  - ABNORMAL DREAMS [None]
  - AFFECTIVE DISORDER [None]
  - AGITATION [None]
  - ANHEDONIA [None]
  - ANXIETY [None]
  - ASTHENIA [None]
  - BALANCE DISORDER [None]
  - BIPOLAR I DISORDER [None]
  - CONDITION AGGRAVATED [None]
  - CONFUSIONAL STATE [None]
  - DEPRESSED MOOD [None]
  - DEPRESSION SUICIDAL [None]
  - DIZZINESS [None]
  - DRY MOUTH [None]
  - DYSPNOEA [None]
  - EMOTIONAL DISTRESS [None]
  - EYE SWELLING [None]
  - FEELING ABNORMAL [None]
  - INSOMNIA [None]
  - IRON DEFICIENCY ANAEMIA [None]
  - LIBIDO DECREASED [None]
  - MOOD SWINGS [None]
  - NAUSEA [None]
  - PANIC ATTACK [None]
  - PARAESTHESIA [None]
  - PHOTOSENSITIVITY REACTION [None]
  - RESTLESSNESS [None]
  - SELF-INJURIOUS IDEATION [None]
  - SLEEP DISORDER [None]
  - SUICIDAL IDEATION [None]
  - SWELLING FACE [None]
  - TEARFULNESS [None]
  - TREATMENT NONCOMPLIANCE [None]
  - TREMOR [None]
  - VOMITING [None]
  - WITHDRAWAL SYNDROME [None]
